FAERS Safety Report 4713953-9 (Version None)
Quarter: 2005Q3

REPORT INFORMATION
  Report Type: 
  Country: None (occurrence: None)
  Receive Date: 20050712
  Receipt Date: 20050622
  Transmission Date: 20060218
  Serious: Yes (Other)
  Sender: FDA-Public Use
  Company Number: AU_050608645

PATIENT
  Age: 81 Year
  Sex: Female

DRUGS (15)
  1. EVISTA [Suspect]
     Indication: OSTEOPOROSIS
     Dosage: 60 MG DAY
     Dates: start: 20010924
  2. ASTRIX (ACETYLSALICYLIC ACID) [Concomitant]
  3. BACTRIM [Concomitant]
  4. CALTRATE [Concomitant]
  5. COVERSYL PLUS [Concomitant]
  6. IMDUR [Concomitant]
  7. LOSEC (OMEPRAZOLE SODIUM) [Concomitant]
  8. MOBIC [Concomitant]
  9. NORMISON (TEMAZEPAM) [Concomitant]
  10. PANAMAX (PARACETAMOL) [Concomitant]
  11. PLAVIX [Concomitant]
  12. ROCALTROL [Concomitant]
  13. TENORMIN [Concomitant]
  14. ZOCOR [Concomitant]
  15. ZYLOPRIM [Concomitant]

REACTIONS (2)
  - LEIOMYOSARCOMA [None]
  - METRORRHAGIA [None]
